FAERS Safety Report 6210615-6 (Version None)
Quarter: 2009Q2

REPORT INFORMATION
  Report Type: 
  Country: None (occurrence: None)
  Receive Date: 20090527
  Receipt Date: 20090514
  Transmission Date: 20091009
  Serious: Yes (Hospitalization)
  Sender: FDA-Public Use
  Company Number: 235487K09USA

PATIENT
  Age: 46 Year
  Sex: Female

DRUGS (6)
  1. REBIF [Suspect]
     Indication: MULTIPLE SCLEROSIS
     Dosage: 44 MCG, 3 IN 1 WEEKS, SUBCUTANEOUS
     Route: 057
     Dates: start: 20010827
  2. DITROPAN XL (OXYBUTYNIN /00538901/) [Concomitant]
  3. IMIPRAMINE [Concomitant]
  4. FLOMAX (MORNIFLUMATE) [Concomitant]
  5. IMITREX [Concomitant]
  6. CIPRO [Concomitant]

REACTIONS (2)
  - CLOSTRIDIUM DIFFICILE COLITIS [None]
  - HAEMATOCHEZIA [None]
